FAERS Safety Report 9240542 (Version 1)
Quarter: 2013Q1

REPORT INFORMATION
  Report Type: Spontaneous
  Country: US (occurrence: None)
  Receive Date: 20121120
  Receipt Date: 20121120
  Transmission Date: 20140127
  Serious: No
  Sender: FDA-Public Use
  Company Number: 1000038051

PATIENT
  Sex: Female

DRUGS (3)
  1. VIIBRYD [Suspect]
     Indication: DEPRESSION
     Dosage: 10 MG (10 MG, 1 IN 1 D), ORAL
     Route: 048
     Dates: start: 20120814, end: 20120817
  2. ZOLPIDEM (ZOLPIDEM) (ZOLPIDEM) [Concomitant]
  3. SIMVASTATIN (SIMVASTATIN) (SIMVASTATIN) [Concomitant]

REACTIONS (7)
  - Vomiting [None]
  - Diarrhoea [None]
  - Euphoric mood [None]
  - Heart rate increased [None]
  - Respiratory rate increased [None]
  - Anxiety [None]
  - Dizziness [None]
